FAERS Safety Report 23297916 (Version 1)
Quarter: 2023Q4

REPORT INFORMATION
  Report Type: Report from Study
  Country: BE (occurrence: BE)
  Receive Date: 20231214
  Receipt Date: 20231214
  Transmission Date: 20240110
  Serious: Yes (Hospitalization)
  Sender: FDA-Public Use
  Company Number: BE-ABBVIE-5532251

PATIENT
  Sex: Female
  Weight: 56 kg

DRUGS (7)
  1. CARBIDOPA\LEVODOPA [Suspect]
     Active Substance: CARBIDOPA\LEVODOPA
     Indication: Parkinson^s disease
     Dosage: MD: 5.5ML, CD:2.2 ML/H, ED:2.0 ML DURING 16 HRS
     Route: 050
     Dates: start: 20231208
  2. CARBIDOPA\LEVODOPA [Suspect]
     Active Substance: CARBIDOPA\LEVODOPA
     Route: 050
     Dates: start: 20160613
  3. STALEVO [Concomitant]
     Active Substance: CARBIDOPA\ENTACAPONE\LEVODOPA
     Indication: Product used for unknown indication
     Dosage: TIME INTERVAL: 0.33333333 DAYS: FORM STRENGTH: 50 MG
  4. LEVOTHYROXINE [Concomitant]
     Active Substance: LEVOTHYROXINE
     Indication: Product used for unknown indication
     Dosage: FORM STRENGTH: 100 MG?FREQUENCY TEXT: AT 07.30
  5. Temesta [Concomitant]
     Indication: Product used for unknown indication
     Dosage: FORM STRENGTH: 2.5 MG?FREQUENCY TEXT: AT NIGHT
  6. Pantomed [Concomitant]
     Indication: Product used for unknown indication
     Dosage: - FORM STRENGTH: 20 MG?FREQUENCY TEXT: AT 12.00
  7. MOTILIUM [Concomitant]
     Active Substance: DOMPERIDONE
     Indication: Product used for unknown indication
     Dosage: FREQUENCY TEXT: AS NEEDED

REACTIONS (4)
  - Hip fracture [Unknown]
  - Dyskinesia [Unknown]
  - Fall [Unknown]
  - Constipation [Unknown]
